FAERS Safety Report 7558455-X (Version None)
Quarter: 2011Q2

REPORT INFORMATION
  Report Type: 
  Country: None (occurrence: None)
  Receive Date: 20110620
  Receipt Date: 20110615
  Transmission Date: 20111010
  Serious: Yes (Hospitalization)
  Sender: FDA-Public Use
  Company Number: US-GILEAD-2011-0040802

PATIENT
  Age: 45 Year
  Sex: Male

DRUGS (4)
  1. PREGABALIN [Concomitant]
  2. ATRIPLA [Suspect]
     Indication: HIV INFECTION
     Route: 048
  3. VALTREX [Concomitant]
  4. VITAMIN D [Concomitant]

REACTIONS (1)
  - INAPPROPRIATE ANTIDIURETIC HORMONE SECRETION [None]
